FAERS Safety Report 11694559 (Version 2)
Quarter: 2015Q4

REPORT INFORMATION
  Report Type: Spontaneous
  Country: US (occurrence: US)
  Receive Date: 20151103
  Receipt Date: 20151110
  Transmission Date: 20160304
  Serious: No
  Sender: FDA-Public Use
  Company Number: US-BAYER-2015-454111

PATIENT
  Age: 76 Year
  Sex: Male
  Weight: 69.39 kg

DRUGS (2)
  1. MILK OF MAGNESIA CHERRY [Suspect]
     Active Substance: MAGNESIUM HYDROXIDE
     Indication: DYSPEPSIA
     Dosage: 3 TABLESPOONS EVERY 3 DAYS
     Route: 048
     Dates: start: 201505, end: 20151023
  2. MIRALAX [Suspect]
     Active Substance: POLYETHYLENE GLYCOL 3350

REACTIONS (3)
  - Pain [None]
  - Product use issue [None]
  - Product physical issue [None]
